FAERS Safety Report 12721845 (Version 3)
Quarter: 2019Q4

REPORT INFORMATION
  Report Type: Spontaneous
  Country: US (occurrence: US)
  Receive Date: 20160907
  Receipt Date: 20191212
  Transmission Date: 20200122
  Serious: Yes (Life-Threatening, Hospitalization)
  Sender: FDA-Public Use
  Company Number: US-JNJFOC-20160601428

PATIENT
  Age: 66 Year
  Sex: Female

DRUGS (2)
  1. XARELTO [Suspect]
     Active Substance: RIVAROXABAN
     Indication: DEEP VEIN THROMBOSIS
     Dosage: VARYING DOSAGES OF 10MG AND 20 MG
     Route: 048
     Dates: start: 20140214, end: 201402
  2. XARELTO [Suspect]
     Active Substance: RIVAROXABAN
     Dosage: VARYING DOSAGES OF 10MG AND 20 MG
     Route: 048
     Dates: start: 201502, end: 20150701

REACTIONS (7)
  - Acute kidney injury [Recovering/Resolving]
  - Respiratory failure [Unknown]
  - Upper gastrointestinal haemorrhage [Recovering/Resolving]
  - Lower gastrointestinal haemorrhage [Recovered/Resolved]
  - Off label use [Unknown]
  - Inappropriate schedule of product administration [Unknown]
  - Haematemesis [Recovered/Resolved]

NARRATIVE: CASE EVENT DATE: 201402
